FAERS Safety Report 16153763 (Version 1)
Quarter: 2019Q2

REPORT INFORMATION
  Report Type: Spontaneous
  Country: US (occurrence: US)
  Receive Date: 20190403
  Receipt Date: 20190403
  Transmission Date: 20190711
  Serious: No
  Sender: FDA-Public Use
  Company Number: US-PFIZER INC-2019135670

PATIENT
  Age: 46 Year
  Sex: Female
  Weight: 63.5 kg

DRUGS (1)
  1. EUCRISA [Suspect]
     Active Substance: CRISABOROLE
     Indication: ECZEMA
     Dosage: UNK, 1X/DAY
     Dates: start: 20190324

REACTIONS (3)
  - Hypersensitivity [Unknown]
  - Product use issue [Unknown]
  - Application site pain [Unknown]

NARRATIVE: CASE EVENT DATE: 20190324
